FAERS Safety Report 9234864 (Version 2)
Quarter: 2013Q2

REPORT INFORMATION
  Report Type: Spontaneous
  Country: US (occurrence: US)
  Receive Date: 20130416
  Receipt Date: 20130507
  Transmission Date: 20140414
  Serious: Yes (Hospitalization)
  Sender: FDA-Public Use
  Company Number: US-PFIZER INC-2013115071

PATIENT
  Age: 85 Year
  Sex: Female
  Weight: 54.42 kg

DRUGS (3)
  1. XALATAN [Suspect]
     Indication: GLAUCOMA
     Dosage: UNK, 1X/DAY
     Route: 047
  2. ATENOLOL [Concomitant]
     Indication: HYPERTENSION
     Dosage: UNK, 1X/DAY
  3. BENAZEPRIL [Concomitant]
     Indication: HYPERTENSION
     Dosage: UNK, 1X/DAY

REACTIONS (6)
  - Bladder disorder [Recovered/Resolved]
  - Bacterial infection [Recovered/Resolved]
  - Urinary tract infection [Recovered/Resolved]
  - Syncope [Recovered/Resolved]
  - Gait disturbance [Recovered/Resolved]
  - Hypovitaminosis [Unknown]
